FAERS Safety Report 8138097-8 (Version None)
Quarter: 2012Q1

REPORT INFORMATION
  Report Type: 
  Country: None (occurrence: None)
  Receive Date: 20120215
  Receipt Date: 20120215
  Transmission Date: 20120608
  Serious: Yes (Life-Threatening, Disabling)
  Sender: FDA-Public Use
  Company Number: None

PATIENT
  Age: 60 Year
  Sex: Female
  Weight: 59.874 kg

DRUGS (1)
  1. RECLAST [Suspect]
     Indication: OSTEOPOROSIS

REACTIONS (14)
  - CHILLS [None]
  - OROPHARYNGEAL PAIN [None]
  - DRUG HYPERSENSITIVITY [None]
  - TREMOR [None]
  - HEADACHE [None]
  - VISUAL IMPAIRMENT [None]
  - VOMITING [None]
  - COMMUNICATION DISORDER [None]
  - NECK PAIN [None]
  - FATIGUE [None]
  - PAIN IN EXTREMITY [None]
  - PAIN [None]
  - OEDEMA [None]
  - EYE PAIN [None]
